FAERS Safety Report 10034279 (Version 1)
Quarter: 2014Q1

REPORT INFORMATION
  Report Type: Spontaneous
  Country: US (occurrence: None)
  Receive Date: 20140324
  Receipt Date: 20140324
  Transmission Date: 20141002
  Serious: Yes (Hospitalization)
  Sender: FDA-Public Use
  Company Number: None

PATIENT
  Age: 73 Year
  Sex: Female
  Weight: 62.1 kg

DRUGS (10)
  1. METHYLPREDNISONE [Suspect]
     Indication: CHRONIC LYMPHOCYTIC LEUKAEMIA
     Dosage: 1000MG/M2 DAYS 1,2 + 3
     Dates: start: 20140317, end: 20140319
  2. OFATUMUMAB [Suspect]
     Indication: CHRONIC LYMPHOCYTIC LEUKAEMIA
     Route: 042
     Dates: start: 20140317
  3. ACYCLOVIR [Concomitant]
  4. ALLOPURINOL [Concomitant]
  5. ASPIRIN [Concomitant]
  6. BACTRIM DS [Concomitant]
  7. FISH OIL [Concomitant]
  8. FLUOXETINE [Concomitant]
  9. SUNCHLORELLA [Concomitant]
  10. VORICONAZOLE [Concomitant]

REACTIONS (5)
  - Dyspnoea exertional [None]
  - Weight increased [None]
  - Tumour lysis syndrome [None]
  - Dyspnoea [None]
  - Urine output decreased [None]
